FAERS Safety Report 20298327 (Version 1)
Quarter: 2022Q1

REPORT INFORMATION
  Report Type: Spontaneous
  Country: CA (occurrence: CA)
  Receive Date: 20220105
  Receipt Date: 20220105
  Transmission Date: 20220423
  Serious: Yes (Death, Other)
  Sender: FDA-Public Use
  Company Number: None

PATIENT
  Age: 67 Year
  Sex: Male

DRUGS (1)
  1. CAPECITABINE [Suspect]
     Active Substance: CAPECITABINE
     Indication: Rectal cancer

REACTIONS (7)
  - Acute kidney injury [Fatal]
  - Cardiac arrest [Fatal]
  - Diabetic ketoacidosis [Fatal]
  - Diarrhoea [Fatal]
  - Neutropenia [Fatal]
  - Sepsis [Fatal]
  - Shock [Fatal]
